FAERS Safety Report 7014492-5 (Version None)
Quarter: 2010Q3

REPORT INFORMATION
  Report Type: 
  Country: None (occurrence: None)
  Receive Date: 20100927
  Receipt Date: 20100922
  Transmission Date: 20110219
  Serious: Yes (Death, Hospitalization)
  Sender: FDA-Public Use
  Company Number: AU-CELGENEUS-008-20785-09020609

PATIENT
  Sex: Male
  Weight: 80 kg

DRUGS (2)
  1. THALIDOMIDE [Suspect]
     Route: 048
     Dates: start: 20090210, end: 20090101
  2. AZACITIDINE [Suspect]
     Route: 050
     Dates: start: 20090113, end: 20090101

REACTIONS (1)
  - ENTEROBACTER SEPSIS [None]
